FAERS Safety Report 14854476 (Version 2)
Quarter: 2018Q2

REPORT INFORMATION
  Report Type: Spontaneous
  Country: CN (occurrence: CN)
  Receive Date: 20180507
  Receipt Date: 20180516
  Transmission Date: 20180711
  Serious: Yes (Other)
  Sender: FDA-Public Use
  Company Number: CN-PFIZER INC-2018183093

PATIENT
  Age: 29 Year
  Sex: Male
  Weight: 72 kg

DRUGS (1)
  1. VFEND [Suspect]
     Active Substance: VORICONAZOLE
     Indication: MYELODYSPLASTIC SYNDROME
     Dosage: 0.2 G, TWICE DAILY
     Route: 041
     Dates: start: 20180313, end: 20180313

REACTIONS (4)
  - Loss of consciousness [Recovering/Resolving]
  - Shock haemorrhagic [Recovering/Resolving]
  - Hypotension [Recovering/Resolving]
  - Gastrointestinal haemorrhage [Recovering/Resolving]

NARRATIVE: CASE EVENT DATE: 20180313
